FAERS Safety Report 26016261 (Version 1)
Quarter: 2025Q4

REPORT INFORMATION
  Report Type: Spontaneous
  Country: EU (occurrence: EU)
  Receive Date: 20251110
  Receipt Date: 20251110
  Transmission Date: 20260117
  Serious: Yes (Hospitalization, Other)
  Sender: Haleon PLC
  Company Number: EU-SA-BI2014BI60714GD

PATIENT
  Age: 18 Month
  Sex: Female

DRUGS (2)
  1. IBUPROFEN [Suspect]
     Active Substance: IBUPROFEN
     Indication: Rhinitis
     Dosage: UNK UNK,UNK
  2. BECLOMETHASONE DIPROPIONATE [Suspect]
     Active Substance: BECLOMETHASONE DIPROPIONATE
     Indication: Rhinitis
     Dosage: UNK UNK,UNK

REACTIONS (6)
  - Stevens-Johnson syndrome [Recovered/Resolved]
  - Off label use [Unknown]
  - Eye disorder [Recovered/Resolved]
  - Product administered to patient of inappropriate age [Unknown]
  - Oral disorder [Recovered/Resolved]
  - Anorectal disorder [Recovered/Resolved]
